FAERS Safety Report 11128833 (Version 2)
Quarter: 2015Q3

REPORT INFORMATION
  Report Type: Report from Study
  Country: US (occurrence: US)
  Receive Date: 20150521
  Receipt Date: 20150707
  Transmission Date: 20151125
  Serious: Yes (Hospitalization, Other)
  Sender: FDA-Public Use
  Company Number: PHEH2015US009148

PATIENT
  Age: 58 Year
  Sex: Female

DRUGS (3)
  1. TEGRETOL [Suspect]
     Active Substance: CARBAMAZEPINE
     Dosage: 300 MG, AT 2AM
     Route: 048
     Dates: start: 2011
  2. TEGRETOL [Suspect]
     Active Substance: CARBAMAZEPINE
     Indication: PRODUCT USED FOR UNKNOWN INDICATION
     Dosage: 100 MG, UNK
     Route: 048
  3. TEGRETOL [Suspect]
     Active Substance: CARBAMAZEPINE
     Dosage: 400 MG, AT 2PM
     Route: 048
     Dates: start: 2011

REACTIONS (7)
  - Brain injury [Unknown]
  - Subdural haematoma [Unknown]
  - General physical health deterioration [Unknown]
  - Dizziness [Unknown]
  - Generalised tonic-clonic seizure [Unknown]
  - Coma [Recovered/Resolved]
  - Accident [Unknown]

NARRATIVE: CASE EVENT DATE: 2002
